FAERS Safety Report 7405291-0 (Version None)
Quarter: 2011Q2

REPORT INFORMATION
  Report Type: 
  Country: None (occurrence: None)
  Receive Date: 20110411
  Receipt Date: 20110328
  Transmission Date: 20111010
  Serious: Yes (Other)
  Sender: FDA-Public Use
  Company Number: PHHY2011US26440

PATIENT
  Sex: Female

DRUGS (11)
  1. TOPAMAX [Concomitant]
  2. CALCIUM [Concomitant]
  3. FLAXSEED OIL [Concomitant]
  4. DIOVAN [Suspect]
     Indication: HYPERTENSION
     Dosage: 160 MG, UNK
  5. VICODIN [Concomitant]
  6. ASPIRIN [Concomitant]
  7. ATENOLOL [Suspect]
  8. PHENERGAN HCL [Concomitant]
  9. ZANAFLEX [Concomitant]
  10. DIOVAN [Suspect]
     Dosage: 80 MG, UNK
  11. RECLAST [Suspect]
     Dates: start: 20080911

REACTIONS (3)
  - TOOTH DISORDER [None]
  - BLOOD PRESSURE DECREASED [None]
  - TOOTHACHE [None]
